FAERS Safety Report 8540431-1 (Version None)
Quarter: 2012Q3

REPORT INFORMATION
  Report Type: 
  Country: None (occurrence: None)
  Receive Date: 20120713
  Receipt Date: 20120709
  Transmission Date: 20120928
  Serious: Yes (Other)
  Sender: FDA-Public Use
  Company Number: 2012031739

PATIENT
  Age: 69 Year
  Sex: Female

DRUGS (7)
  1. SENNOSIDE (SENNOSIDE A+B CALCIUM) [Concomitant]
  2. PRIVIGEN [Suspect]
     Indication: GUILLAIN-BARRE SYNDROME
     Dosage: 20 G QD, RATE STARTED AT 60 ENDED BETWEEN 150-180 ML/HR, NI, INTRAVENOUS  (NOT OTHERWISE SPECIFIED)
     Route: 042
     Dates: start: 20120217
  3. PRIVIGEN [Suspect]
     Indication: GUILLAIN-BARRE SYNDROME
  4. HYDROCORTISONE [Concomitant]
  5. NORVASC [Concomitant]
  6. MORPHINE SULFATE [Concomitant]
  7. COLACE (DOCUSATE SODIUM) [Concomitant]

REACTIONS (5)
  - BLOOD LACTATE DEHYDROGENASE INCREASED [None]
  - HAEMOLYSIS [None]
  - HYPERTENSION [None]
  - HAEMOGLOBIN DECREASED [None]
  - HAPTOGLOBIN DECREASED [None]
